FAERS Safety Report 4837427-X (Version None)
Quarter: 2005Q4

REPORT INFORMATION
  Report Type: 
  Country: None (occurrence: None)
  Receive Date: 20051128
  Receipt Date: 20051128
  Transmission Date: 20060501
  Serious: Yes (Other)
  Sender: FDA-Public Use
  Company Number: None

PATIENT
  Age: 5 Year
  Sex: Female
  Weight: 18.1439 kg

DRUGS (2)
  1. LIDOCAINE AND EPINEPHRINE [Suspect]
     Dosage: TOPICAL APPLICATION
  2. LIDOCAINE AND EPINEPHRINE [Suspect]

REACTIONS (2)
  - DRUG INEFFECTIVE [None]
  - PHARMACEUTICAL PRODUCT COMPLAINT [None]
